FAERS Safety Report 4892358-4 (Version None)
Quarter: 2006Q1

REPORT INFORMATION
  Report Type: 
  Country: None (occurrence: None)
  Receive Date: 20060126
  Receipt Date: 20060123
  Transmission Date: 20060701
  Serious: Yes (Other)
  Sender: FDA-Public Use
  Company Number: GB-GLAXOSMITHKLINE-B0407606A

PATIENT
  Age: 55 Year
  Sex: Male
  Weight: 76.2 kg

DRUGS (4)
  1. ZYBAN [Suspect]
     Indication: SMOKING CESSATION THERAPY
     Dosage: 150MG PER DAY
     Route: 048
     Dates: start: 20051212, end: 20051217
  2. PREDNISOLONE [Concomitant]
     Indication: CHRONIC OBSTRUCTIVE PULMONARY DISEASE
     Dosage: 40MG PER DAY
     Route: 048
     Dates: start: 20051011, end: 20051016
  3. SALBUTAMOL [Concomitant]
     Indication: CHRONIC OBSTRUCTIVE PULMONARY DISEASE
     Dates: start: 20051001, end: 20051016
  4. AMOXICILLIN [Concomitant]
     Indication: CHRONIC OBSTRUCTIVE PULMONARY DISEASE
     Dosage: 250MG PER DAY
     Route: 048
     Dates: start: 20051001, end: 20051016

REACTIONS (3)
  - MEMORY IMPAIRMENT [None]
  - SPEECH DISORDER [None]
  - TINNITUS [None]
